FAERS Safety Report 8494827-7 (Version None)
Quarter: 2012Q3

REPORT INFORMATION
  Report Type: 
  Country: None (occurrence: None)
  Receive Date: 20120709
  Receipt Date: 20120629
  Transmission Date: 20120928
  Serious: Yes (Other)
  Sender: FDA-Public Use
  Company Number: AU-JNJFOC-20120601034

PATIENT
  Sex: Female
  Weight: 61.7 kg

DRUGS (7)
  1. REMICADE [Suspect]
     Route: 042
     Dates: start: 20120330
  2. REMICADE [Suspect]
     Route: 042
     Dates: start: 20111209
  3. REMICADE [Suspect]
     Route: 042
     Dates: start: 20110610
  4. REMICADE [Suspect]
     Route: 042
     Dates: start: 20120203
  5. REMICADE [Suspect]
     Route: 042
     Dates: start: 20110722
  6. REMICADE [Suspect]
     Indication: CROHN'S DISEASE
     Route: 042
     Dates: start: 20111014
  7. REMICADE [Suspect]
     Route: 042
     Dates: start: 20110624

REACTIONS (3)
  - SYSTEMIC LUPUS ERYTHEMATOSUS [None]
  - DRUG ERUPTION [None]
  - ANTINUCLEAR ANTIBODY POSITIVE [None]
